FAERS Safety Report 10389110 (Version 1)
Quarter: 2014Q3

REPORT INFORMATION
  Report Type: Spontaneous
  Country: JP (occurrence: JP)
  Receive Date: 20140817
  Receipt Date: 20140817
  Transmission Date: 20150326
  Serious: Yes (Hospitalization)
  Sender: FDA-Public Use
  Company Number: PHHY2011JP122193

PATIENT
  Sex: Female

DRUGS (2)
  1. TASIGNA [Suspect]
     Active Substance: NILOTINIB
     Dosage: 50 DF, (10000 MG/BODY)
  2. TASIGNA [Suspect]
     Active Substance: NILOTINIB
     Dosage: 3 DF, UNK

REACTIONS (1)
  - Intentional overdose [Unknown]
